FAERS Safety Report 12442597 (Version 2)
Quarter: 2016Q3

REPORT INFORMATION
  Report Type: Report from Study
  Country: BR (occurrence: BR)
  Receive Date: 20160607
  Receipt Date: 20160719
  Transmission Date: 20161109
  Serious: Yes (Hospitalization)
  Sender: FDA-Public Use
  Company Number: PHHY2015BR117803

PATIENT
  Age: 40 Year
  Sex: Female
  Weight: 37 kg

DRUGS (1)
  1. EXJADE [Suspect]
     Active Substance: DEFERASIROX
     Indication: SICKLE CELL ANAEMIA
     Dosage: 30 MG/KG, QD (2 DF OF 500 MG)
     Route: 048

REACTIONS (4)
  - Biliary colic [Recovered/Resolved]
  - Malaise [Unknown]
  - Heart rate decreased [Unknown]
  - Weight decreased [Unknown]

NARRATIVE: CASE EVENT DATE: 20160427
